FAERS Safety Report 13293814 (Version 1)
Quarter: 2017Q1

REPORT INFORMATION
  Report Type: Spontaneous
  Country: FR (occurrence: FR)
  Receive Date: 20170303
  Receipt Date: 20170303
  Transmission Date: 20170428
  Serious: Yes (Hospitalization, Other)
  Sender: FDA-Public Use
  Company Number: FR-ASTRAZENECA-2017SE22150

PATIENT
  Age: 899 Month
  Sex: Female

DRUGS (11)
  1. TAGRISSO [Suspect]
     Active Substance: OSIMERTINIB
     Indication: LUNG NEOPLASM MALIGNANT
     Route: 048
     Dates: start: 20161214, end: 201702
  2. LYRICA [Concomitant]
     Active Substance: PREGABALIN
  3. ALPRAZOLAM. [Concomitant]
     Active Substance: ALPRAZOLAM
  4. PARACETAMOL [Concomitant]
     Active Substance: ACETAMINOPHEN
  5. TAGRISSO [Suspect]
     Active Substance: OSIMERTINIB
     Indication: LUNG NEOPLASM MALIGNANT
     Route: 048
  6. LOXEN [Concomitant]
     Active Substance: NICARDIPINE HYDROCHLORIDE
  7. DUROGESIC [Concomitant]
     Active Substance: FENTANYL
  8. LAROXYL [Concomitant]
     Active Substance: AMITRIPTYLINE
  9. ZOPICLONE [Concomitant]
     Active Substance: ZOPICLONE
  10. CITALOPRAM [Concomitant]
     Active Substance: CITALOPRAM HYDROBROMIDE
  11. TAGRISSO [Suspect]
     Active Substance: OSIMERTINIB
     Indication: LUNG NEOPLASM MALIGNANT
     Route: 048
     Dates: start: 20161103, end: 20161128

REACTIONS (2)
  - Neutropenia [Unknown]
  - Dyspepsia [Unknown]

NARRATIVE: CASE EVENT DATE: 201702
